FAERS Safety Report 20430121 (Version 1)
Quarter: 2022Q1

REPORT INFORMATION
  Report Type: Report from Study
  Country: FR (occurrence: FR)
  Receive Date: 20220204
  Receipt Date: 20220204
  Transmission Date: 20220424
  Serious: Yes (Other)
  Sender: FDA-Public Use
  Company Number: FR-SERVIER-S20003484

PATIENT

DRUGS (8)
  1. ONCASPAR [Suspect]
     Active Substance: PEGASPARGASE
     Indication: Acute lymphocytic leukaemia
     Dosage: 5000 IU, D12, D26
     Route: 042
     Dates: start: 20190105, end: 20190119
  2. TN UNSPECIFIED [Concomitant]
     Indication: Acute lymphocytic leukaemia
     Dosage: 2 MG ON D8, D15, D22, D29
     Route: 042
     Dates: start: 20190101, end: 20190122
  3. TN UNSPECIFIED [Concomitant]
     Indication: Acute lymphocytic leukaemia
     Dosage: 84 MG ON D8, D15, D22, D29)
     Route: 042
     Dates: start: 20190101, end: 20190122
  4. TN UNSPECIFIED [Concomitant]
     Indication: Acute lymphocytic leukaemia
     Dosage: UNKNOWN DOSAGE ON D4, D9, D18, D24
     Route: 037
     Dates: start: 20171228, end: 20180117
  5. TN UNSPECIFIED [Concomitant]
     Indication: Acute lymphocytic leukaemia
     Dosage: UNKNOWN DOSAGE ON D4, D9, D18, D24
     Route: 037
     Dates: start: 20171228, end: 20180117
  6. TN UNSPECIFIED [Concomitant]
     Indication: Acute lymphocytic leukaemia
     Dosage: UNKNOWN DOSAGE ON D4, D9, D18, D24
     Route: 037
     Dates: start: 20171228, end: 20180117
  7. TN UNSPECIFIED [Concomitant]
     Indication: Acute lymphocytic leukaemia
     Dosage: 2102.5 MG, D9
     Route: 042
     Dates: start: 20190102
  8. TN UNSPECIFIED [Concomitant]
     Indication: Acute lymphocytic leukaemia
     Dosage: UNKNWON DOSAGE ON D1 TO D28
     Route: 065
     Dates: start: 20181225, end: 20190121

REACTIONS (1)
  - Hepatic steatosis [Recovered/Resolved]

NARRATIVE: CASE EVENT DATE: 20190128
